FAERS Safety Report 25199104 (Version 1)
Quarter: 2025Q2

REPORT INFORMATION
  Report Type: Report from Study
  Country: GR (occurrence: GR)
  Receive Date: 20250415
  Receipt Date: 20250415
  Transmission Date: 20250716
  Serious: Yes (Other)
  Sender: TAKEDA
  Company Number: GR-TAKEDA-2025TUS036480

PATIENT
  Age: 81 Year
  Sex: Male

DRUGS (7)
  1. HUMAN IMMUNOGLOBULIN G\HYALURONIDASE RECOMBINANT HUMAN [Suspect]
     Active Substance: HUMAN IMMUNOGLOBULIN G\HYALURONIDASE (HUMAN RECOMBINANT)
     Indication: Chronic myeloid leukaemia
     Dosage: UNK UNK, Q3MONTHS
     Dates: start: 20221024
  2. HUMAN IMMUNOGLOBULIN G\HYALURONIDASE RECOMBINANT HUMAN [Suspect]
     Active Substance: HUMAN IMMUNOGLOBULIN G\HYALURONIDASE (HUMAN RECOMBINANT)
     Indication: Immunodeficiency
  3. IMBRUVICA [Suspect]
     Active Substance: IBRUTINIB
     Indication: Chronic lymphocytic leukaemia
     Dosage: 280 MILLIGRAM, BID
  4. ZOVIRAX [Concomitant]
     Active Substance: ACYCLOVIR
     Indication: Herpes zoster
     Dosage: 200 MILLIGRAM, BID
  5. Dementis [Concomitant]
     Indication: Dementia
     Dosage: 5 MILLIGRAM, QD
  6. MEMANTINE [Concomitant]
     Active Substance: MEMANTINE
     Indication: Dementia
     Dosage: 20 MILLIGRAM, QD
  7. LYRICA [Concomitant]
     Active Substance: PREGABALIN
     Indication: Herpes zoster
     Dosage: 50 MILLIGRAM, QD

REACTIONS (4)
  - Atrial fibrillation [Unknown]
  - Dementia [Unknown]
  - Product use issue [Unknown]
  - Erythema [Unknown]

NARRATIVE: CASE EVENT DATE: 20221024
